FAERS Safety Report 8242937-1 (Version None)
Quarter: 2012Q1

REPORT INFORMATION
  Report Type: 
  Country: None (occurrence: None)
  Receive Date: 20120329
  Receipt Date: 20120329
  Transmission Date: 20120608
  Serious: Yes (Other)
  Sender: FDA-Public Use
  Company Number: None

PATIENT
  Age: 63 Year
  Sex: Female
  Weight: 65.77 kg

DRUGS (1)
  1. LOSARTAN POTASSIUM [Suspect]
     Indication: HYPERTENSION
     Dosage: ONE 25MG TABLET
     Route: 048
     Dates: start: 20120302, end: 20120312

REACTIONS (4)
  - DIARRHOEA [None]
  - CHEST PAIN [None]
  - PRODUCT SUBSTITUTION ISSUE [None]
  - HEADACHE [None]
